FAERS Safety Report 19041246 (Version 1)
Quarter: 2021Q1

REPORT INFORMATION
  Report Type: Spontaneous
  Country: US (occurrence: US)
  Receive Date: 20210323
  Receipt Date: 20210323
  Transmission Date: 20210420
  Serious: No
  Sender: FDA-Public Use
  Company Number: US-GLAXOSMITHKLINE-US2021063965

PATIENT
  Age: 79 Year
  Sex: Female

DRUGS (3)
  1. BREO ELLIPTA [Suspect]
     Active Substance: FLUTICASONE FUROATE\VILANTEROL TRIFENATATE
     Indication: BRONCHITIS CHRONIC
     Dosage: 1 PUFF(S), QD
     Route: 055
     Dates: start: 20210317
  2. AZELASTINE NASAL SPRAY [Concomitant]
     Active Substance: AZELASTINE
     Indication: PRODUCT USED FOR UNKNOWN INDICATION
     Dosage: UNK
  3. BREO ELLIPTA [Suspect]
     Active Substance: FLUTICASONE FUROATE\VILANTEROL TRIFENATATE
     Indication: CHRONIC OBSTRUCTIVE PULMONARY DISEASE
     Dosage: 1 PUFF(S), 1D,100/25
     Route: 055
     Dates: end: 20210316

REACTIONS (8)
  - Condition aggravated [Unknown]
  - Oropharyngeal pain [Unknown]
  - Product dose omission issue [Unknown]
  - Dysphonia [Unknown]
  - Laryngitis [Unknown]
  - Aphonia [Unknown]
  - Throat irritation [Unknown]
  - Cough [Unknown]

NARRATIVE: CASE EVENT DATE: 202102
